APPROVED DRUG PRODUCT: TARCEVA
Active Ingredient: ERLOTINIB HYDROCHLORIDE
Strength: EQ 150MG BASE **Federal Register determination that product was not discontinued or withdrawn for safety or effectiveness reasons**
Dosage Form/Route: TABLET;ORAL
Application: N021743 | Product #003
Applicant: OSI PHARMACEUTICALS LLC
Approved: Nov 18, 2004 | RLD: Yes | RS: No | Type: DISCN